FAERS Safety Report 4471521-0 (Version None)
Quarter: 2004Q4

REPORT INFORMATION
  Report Type: 
  Country: None (occurrence: None)
  Receive Date: 20041006
  Receipt Date: 20040923
  Transmission Date: 20050328
  Serious: Yes (Death)
  Sender: FDA-Public Use
  Company Number: 2004070141

PATIENT
  Sex: Male

DRUGS (2)
  1. NAVANE [Suspect]
     Indication: ILL-DEFINED DISORDER
     Dosage: 10 MG (1 IN 1 D)
  2. CARDIOVASCULAR SYSTEM DRUGS [Concomitant]

REACTIONS (5)
  - LEUKAEMIA [None]
  - MEDICATION ERROR [None]
  - MENTAL STATUS CHANGES [None]
  - MOOD ALTERED [None]
  - TARDIVE DYSKINESIA [None]
